FAERS Safety Report 23645768 (Version 1)
Quarter: 2024Q1

REPORT INFORMATION
  Report Type: Spontaneous
  Country: CN (occurrence: CN)
  Receive Date: 20240319
  Receipt Date: 20240319
  Transmission Date: 20240410
  Serious: Yes (Other)
  Sender: FDA-Public Use
  Company Number: CN-BEH-2024169772

PATIENT
  Age: 75 Year
  Sex: Female
  Weight: 62 kg

DRUGS (3)
  1. ALBURX [Suspect]
     Active Substance: ALBUMIN HUMAN
     Indication: Hypoproteinaemia
     Dosage: 10 GRAM, OD
     Route: 042
     Dates: start: 20240219, end: 20240222
  2. CEFUROXIME SODIUM [Suspect]
     Active Substance: CEFUROXIME SODIUM
     Indication: Femoral neck fracture
     Dosage: 1.5 GRAM, BID
     Route: 042
     Dates: start: 20240216, end: 20240222
  3. SODIUM CHLORIDE [Concomitant]
     Active Substance: SODIUM CHLORIDE
     Dosage: 100 MILLILITER, BID
     Route: 042
     Dates: start: 20240216, end: 20240222

REACTIONS (4)
  - Perineal erythema [Unknown]
  - Erythema [Unknown]
  - Pruritus [Recovering/Resolving]
  - Rash [Recovering/Resolving]

NARRATIVE: CASE EVENT DATE: 20240219
